FAERS Safety Report 9292138 (Version 2)
Quarter: 2013Q3

REPORT INFORMATION
  Report Type: Spontaneous
  Country: BR (occurrence: BR)
  Receive Date: 20130516
  Receipt Date: 20130711
  Transmission Date: 20140515
  Serious: Yes (Hospitalization, Other)
  Sender: FDA-Public Use
  Company Number: BR-JNJFOC-20130310996

PATIENT
  Sex: Female

DRUGS (2)
  1. EVRA [Suspect]
     Indication: CONTRACEPTION
     Route: 062
     Dates: start: 201301, end: 201302
  2. EVRA [Suspect]
     Indication: MENSTRUAL CYCLE MANAGEMENT
     Route: 062
     Dates: start: 201301, end: 201302

REACTIONS (10)
  - Anaemia [Not Recovered/Not Resolved]
  - Nervousness [Recovered/Resolved]
  - Acne [Not Recovered/Not Resolved]
  - Blood pressure decreased [Not Recovered/Not Resolved]
  - Tremor [Recovered/Resolved]
  - Inappropriate schedule of drug administration [Unknown]
  - Off label use [Recovered/Resolved]
  - Product quality issue [Unknown]
  - Metrorrhagia [Recovered/Resolved]
  - Asthenia [Unknown]
